FAERS Safety Report 6182065-2 (Version None)
Quarter: 2009Q2

REPORT INFORMATION
  Report Type: 
  Country: None (occurrence: None)
  Receive Date: 20090507
  Receipt Date: 20090429
  Transmission Date: 20091009
  Serious: Yes (Other)
  Sender: FDA-Public Use
  Company Number: US-PFIZER INC-2004227045US

PATIENT
  Sex: Female
  Weight: 86 kg

DRUGS (8)
  1. PROVERA [Suspect]
     Indication: HORMONE REPLACEMENT THERAPY
     Dosage: UNK
     Route: 048
     Dates: start: 19850101, end: 19950101
  2. PROVERA [Suspect]
     Indication: MENOPAUSE
  3. PREMARIN [Suspect]
     Indication: HORMONE REPLACEMENT THERAPY
     Dosage: UNK
     Route: 065
     Dates: start: 19850101, end: 19950101
  4. PREMARIN [Suspect]
     Indication: MENOPAUSE
  5. PREMPRO [Suspect]
     Indication: HORMONE REPLACEMENT THERAPY
     Dosage: UNK
     Route: 065
     Dates: start: 19950101, end: 20000101
  6. PREMPRO [Suspect]
     Indication: MENOPAUSE
  7. NORVASC [Concomitant]
     Indication: HYPERTENSION
     Dosage: UNK
  8. SYNTHROID [Concomitant]
     Indication: THYROID FUNCTION TEST ABNORMAL
     Dosage: UNK

REACTIONS (1)
  - BREAST CANCER [None]
